FAERS Safety Report 11334808 (Version 1)
Quarter: 2015Q3

REPORT INFORMATION
  Report Type: Spontaneous
  Country: GB (occurrence: None)
  Receive Date: 20150731
  Receipt Date: 20150731
  Transmission Date: 20151125
  Serious: Yes (Disabling)
  Sender: FDA-Public Use
  Company Number: COL_20144_2015

PATIENT
  Age: 24 Year
  Sex: Female

DRUGS (1)
  1. COLGATE DEEP CLEAN FLUORIDE [Suspect]
     Active Substance: SODIUM FLUORIDE
     Indication: PRODUCT USED FOR UNKNOWN INDICATION
     Route: 048
     Dates: start: 20150628, end: 2015

REACTIONS (10)
  - Swollen tongue [None]
  - Pharyngitis [None]
  - Feeding disorder [None]
  - Dyspnoea [None]
  - Pain [None]
  - Oral mucosal exfoliation [None]
  - Aphthous ulcer [None]
  - Dysphagia [None]
  - Gingival bleeding [None]
  - Infective glossitis [None]

NARRATIVE: CASE EVENT DATE: 20150628
